FAERS Safety Report 9576444 (Version 1)
Quarter: 2013Q4

REPORT INFORMATION
  Report Type: Spontaneous
  Country: US (occurrence: US)
  Receive Date: 20131001
  Receipt Date: 20131001
  Transmission Date: 20140711
  Serious: No
  Sender: FDA-Public Use
  Company Number: US-AMGEN-USASP2013003293

PATIENT
  Sex: Female

DRUGS (13)
  1. ENBREL [Suspect]
     Indication: RHEUMATOID ARTHRITIS
     Dosage: 50 MG, QWK
     Route: 058
  2. FLEXERIL                           /00428402/ [Concomitant]
     Dosage: 10 MG, UNK
  3. PLAQUENIL                          /00072602/ [Concomitant]
     Dosage: 200 MG, UNK
  4. MELOXICAM [Concomitant]
     Dosage: 15 MG, UNK
  5. METHOTREXATE [Concomitant]
     Dosage: 2.5 MG, UNK
  6. CARAFATE [Concomitant]
     Dosage: 1 G, UNK
  7. OMEPRAZOLE [Concomitant]
     Dosage: 20 MG, UNK
  8. FOLIC ACID [Concomitant]
     Dosage: 1 MG, UNK
  9. NEXIUM                             /01479302/ [Concomitant]
     Dosage: 20 MG, UNK
  10. VITAMIN B 12 [Concomitant]
     Dosage: 1000 MUG, UNK
  11. LORTAB                             /00607101/ [Concomitant]
     Dosage: 10-500 MG
  12. HYDROCODONE [Concomitant]
     Dosage: UNK
  13. HOMATROPIL [Concomitant]

REACTIONS (1)
  - Drug ineffective [Unknown]
